FAERS Safety Report 7682691-5 (Version None)
Quarter: 2011Q3

REPORT INFORMATION
  Report Type: 
  Country: None (occurrence: None)
  Receive Date: 20110815
  Receipt Date: 20110803
  Transmission Date: 20111222
  Serious: No
  Sender: FDA-Public Use
  Company Number: US-JNJFOC-20110802632

PATIENT
  Sex: Female

DRUGS (3)
  1. CLONAZEPAM [Concomitant]
     Route: 048
  2. RISPERIDONE [Concomitant]
     Route: 048
  3. INVEGA SUSTENNA [Suspect]
     Indication: PRODUCT USED FOR UNKNOWN INDICATION
     Route: 030

REACTIONS (3)
  - MEDICAL DEVICE COMPLICATION [None]
  - DEVICE LEAKAGE [None]
  - INCORRECT DOSE ADMINISTERED [None]
